FAERS Safety Report 7803456-7 (Version None)
Quarter: 2011Q4

REPORT INFORMATION
  Report Type: 
  Country: None (occurrence: None)
  Receive Date: 20111007
  Receipt Date: 20111003
  Transmission Date: 20120403
  Serious: Yes (Death, Hospitalization)
  Sender: FDA-Public Use
  Company Number: FR-ASTRAZENECA-2011SE59435

PATIENT
  Age: 26939 Day
  Sex: Male

DRUGS (10)
  1. FRAXODI [Suspect]
     Indication: JUGULAR VEIN THROMBOSIS
     Dates: start: 20100310
  2. NEXIUM [Suspect]
     Route: 048
     Dates: start: 20100224
  3. CLONAZEPAM [Concomitant]
  4. AMOXICILLIN [Concomitant]
     Indication: HELICOBACTER INFECTION
  5. CIPROFLOXACIN [Concomitant]
     Indication: ESCHERICHIA URINARY TRACT INFECTION
  6. CLARITHROMYCIN [Concomitant]
     Indication: HELICOBACTER INFECTION
  7. ATARAX [Concomitant]
  8. ACETAMINOPHEN [Concomitant]
  9. COLCHICINE [Concomitant]
     Indication: GOUT
  10. PREDNISONE [Concomitant]

REACTIONS (1)
  - TOXIC EPIDERMAL NECROLYSIS [None]
